FAERS Safety Report 24583700 (Version 3)
Quarter: 2024Q4

REPORT INFORMATION
  Report Type: Spontaneous
  Country: US (occurrence: US)
  Receive Date: 20241106
  Receipt Date: 20241125
  Transmission Date: 20250114
  Serious: Yes (Life-Threatening, Hospitalization, Other)
  Sender: AUROBINDO
  Company Number: US-AUROBINDO-AUR-APL-2024-053431

PATIENT
  Age: 78 Year
  Sex: Female

DRUGS (8)
  1. AMIODARONE HYDROCHLORIDE [Suspect]
     Active Substance: AMIODARONE HYDROCHLORIDE
     Indication: Atrial fibrillation
     Dosage: 200 MILLIGRAM, DAILY (DOSE WAS INCREASED TO 200MG TWICE DAILY FOR THE DURATION OF THE BLANKING PERIO
     Route: 065
  2. FLECAINIDE [Suspect]
     Active Substance: FLECAINIDE
     Indication: Cardioversion
     Dosage: 300 MILLIGRAM
     Route: 048
     Dates: start: 202210
  3. FLECAINIDE [Suspect]
     Active Substance: FLECAINIDE
     Indication: Atrial fibrillation
     Dosage: 900 MILLIGRAM, DAILY (FOR 7 DAYS)
     Route: 048
  4. FLECAINIDE [Suspect]
     Active Substance: FLECAINIDE
     Dosage: 150 MILLIGRAM, TWO TIMES A DAY
     Route: 048
  5. FLECAINIDE [Suspect]
     Active Substance: FLECAINIDE
     Dosage: 300 MILLIGRAM, AS NECESSARY
     Route: 065
     Dates: start: 202211
  6. VERAPAMIL [Concomitant]
     Active Substance: VERAPAMIL HYDROCHLORIDE
     Indication: Product used for unknown indication
     Dosage: 240 UNK, TWO TIMES A DAY
     Route: 065
  7. VERAPAMIL [Concomitant]
     Active Substance: VERAPAMIL HYDROCHLORIDE
     Indication: Atrial fibrillation
     Dosage: 120 MILLIGRAM, TWO TIMES A DAY
     Route: 065
  8. ALBUTEROL [Concomitant]
     Active Substance: ALBUTEROL
     Indication: Asthma
     Dosage: UNK (MULTIPLE DOSES)
     Route: 065

REACTIONS (13)
  - Ventricular hypokinesia [Unknown]
  - Electrocardiogram QRS complex prolonged [Recovering/Resolving]
  - Accidental overdose [Recovered/Resolved]
  - Ejection fraction decreased [Unknown]
  - Heart rate increased [Recovering/Resolving]
  - Asthenia [Unknown]
  - Nausea [Unknown]
  - Vomiting [Unknown]
  - Dyspnoea [Unknown]
  - Self-medication [Unknown]
  - Toxicity to various agents [Unknown]
  - Intentional product misuse [Unknown]
  - Drug ineffective [Unknown]

NARRATIVE: CASE EVENT DATE: 20230101
